FAERS Safety Report 7165172-7 (Version None)
Quarter: 2010Q4

REPORT INFORMATION
  Report Type: 
  Country: None (occurrence: None)
  Receive Date: 20101215
  Receipt Date: 20091218
  Transmission Date: 20110411
  Serious: No
  Sender: FDA-Public Use
  Company Number: US-AMGEN-TCS381357

PATIENT

DRUGS (2)
  1. ENBREL [Suspect]
     Indication: RHEUMATOID ARTHRITIS
     Dosage: 25 MG, 2 TIMES/WK
     Route: 058
     Dates: start: 19981212
  2. METHOTREXATE [Concomitant]
     Dosage: 7.5 MG, QWK
     Route: 048
     Dates: start: 20091101

REACTIONS (8)
  - DIARRHOEA [None]
  - DRY EYE [None]
  - EYE INFECTION [None]
  - EYE INFLAMMATION [None]
  - EYE PRURITUS [None]
  - NAUSEA [None]
  - OCULAR HYPERAEMIA [None]
  - RHEUMATOID ARTHRITIS [None]
